FAERS Safety Report 21264905 (Version 1)
Quarter: 2022Q3

REPORT INFORMATION
  Report Type: Report from Study
  Country: US (occurrence: US)
  Receive Date: 20220829
  Receipt Date: 20220829
  Transmission Date: 20221027
  Serious: Yes (Other)
  Sender: FDA-Public Use
  Company Number: US-MYLANLABS-2022M1077679

PATIENT
  Sex: Female
  Weight: 76.6 kg

DRUGS (4)
  1. GLATIRAMER ACETATE [Suspect]
     Active Substance: GLATIRAMER ACETATE
     Indication: Multiple sclerosis
     Dosage: 40 MILLIGRAM, 3XW
     Route: 058
  2. GLATIRAMER ACETATE [Suspect]
     Active Substance: GLATIRAMER ACETATE
     Indication: Relapsing-remitting multiple sclerosis
  3. DEVICE [Suspect]
     Active Substance: DEVICE
     Indication: Multiple sclerosis
     Dosage: UNK
     Route: 065
  4. DEVICE [Suspect]
     Active Substance: DEVICE
     Indication: Relapsing-remitting multiple sclerosis

REACTIONS (7)
  - Abortion spontaneous [Recovered/Resolved]
  - Menstruation irregular [Unknown]
  - Maternal exposure during pregnancy [Recovered/Resolved]
  - Injection site swelling [Unknown]
  - Injection site induration [Unknown]
  - Device issue [Unknown]
  - Product dose omission issue [Unknown]
